FAERS Safety Report 6773656-6 (Version None)
Quarter: 2010Q2

REPORT INFORMATION
  Report Type: 
  Country: None (occurrence: None)
  Receive Date: 20100615
  Receipt Date: 20100615
  Transmission Date: 20101027
  Serious: Yes (Hospitalization)
  Sender: FDA-Public Use
  Company Number: None

PATIENT
  Age: 77 Year
  Sex: Male

DRUGS (1)
  1. NEOSTIGMINE [Suspect]
     Indication: ABDOMINAL DISTENSION
     Dosage: 0.5MG X1 IV BOLUS
     Route: 040
     Dates: start: 20100409, end: 20100409

REACTIONS (1)
  - BRONCHOSPASM [None]
